FAERS Safety Report 6689420-2 (Version None)
Quarter: 2010Q2

REPORT INFORMATION
  Report Type: 
  Country: None (occurrence: None)
  Receive Date: 20100420
  Receipt Date: 20100415
  Transmission Date: 20101027
  Serious: Yes (Hospitalization)
  Sender: FDA-Public Use
  Company Number: GB-BRISTOL-MYERS SQUIBB COMPANY-15064603

PATIENT
  Age: 38 Year
  Sex: Female

DRUGS (6)
  1. EFAVIRENZ [Suspect]
     Dates: end: 20091117
  2. INFLUENZA VACCINE [Suspect]
     Dates: start: 20091126, end: 20091126
  3. VIRAMUNE [Suspect]
     Indication: HIV TEST POSITIVE
     Dosage: 5NOV-16NOV09=200MG 1/1 DAY 17NOV-30NOV09= 200MG 2/1 DAY
     Route: 048
     Dates: start: 20091105, end: 20091130
  4. ADCAL-D3 [Concomitant]
     Indication: HYPOVITAMINOSIS
     Route: 048
     Dates: start: 20090501
  5. GAVISCON [Concomitant]
     Indication: GASTRITIS
     Route: 048
     Dates: start: 20090401
  6. TRUVADA [Concomitant]
     Indication: HIV INFECTION
     Route: 048
     Dates: start: 20090101

REACTIONS (8)
  - ABDOMINAL DISTENSION [None]
  - ABDOMINAL PAIN [None]
  - ASPARTATE AMINOTRANSFERASE INCREASED [None]
  - BODY TEMPERATURE INCREASED [None]
  - HYPERSENSITIVITY [None]
  - INJECTION SITE PAIN [None]
  - LIP SWELLING [None]
  - RASH [None]
